FAERS Safety Report 4531151-9 (Version None)
Quarter: 2004Q4

REPORT INFORMATION
  Report Type: 
  Country: None (occurrence: None)
  Receive Date: 20041216
  Receipt Date: 20041129
  Transmission Date: 20050328
  Serious: Yes (Other)
  Sender: FDA-Public Use
  Company Number: GBS040915657

PATIENT
  Age: 69 Year
  Sex: Female
  Weight: 70 kg

DRUGS (7)
  1. FORTEO [Suspect]
     Indication: OSTEOPOROSIS
     Dosage: 20 UG DAY
     Dates: start: 20040201, end: 20040930
  2. FLUOXETINE [Concomitant]
     Indication: OSTEOPOROSIS
     Dosage: 20 UG DAY
     Dates: start: 20040201, end: 20040930
  3. FLUOXETINE [Concomitant]
  4. CARDURA [Concomitant]
  5. BENDROFLUAZIDE [Concomitant]
  6. AMITRIPTYLINE HCL [Concomitant]
  7. VIOXX [Concomitant]

REACTIONS (2)
  - BONE PAIN [None]
  - OSTEOMA [None]
